FAERS Safety Report 5143167-2 (Version None)
Quarter: 2006Q4

REPORT INFORMATION
  Report Type: 
  Country: None (occurrence: None)
  Receive Date: 20061031
  Receipt Date: 20061031
  Transmission Date: 20070319
  Serious: Yes (Life-Threatening, Hospitalization)
  Sender: FDA-Public Use
  Company Number: None

PATIENT
  Age: 57 Year
  Sex: Male
  Weight: 84.4 kg

DRUGS (1)
  1. LISINOPRIL [Suspect]

REACTIONS (1)
  - ANGIONEUROTIC OEDEMA [None]
